FAERS Safety Report 21212389 (Version 4)
Quarter: 2022Q4

REPORT INFORMATION
  Report Type: Report from Study
  Country: US (occurrence: US)
  Receive Date: 20220815
  Receipt Date: 20221104
  Transmission Date: 20230113
  Serious: Yes (Death)
  Sender: FDA-Public Use
  Company Number: US-Taiho Oncology Inc-EU-2022-01462

PATIENT
  Sex: Female

DRUGS (2)
  1. LONSURF [Suspect]
     Active Substance: TIPIRACIL HYDROCHLORIDE\TRIFLURIDINE
     Indication: Colon cancer
     Dosage: CYCLE UNKNOWN
     Dates: start: 20220512
  2. LONSURF [Suspect]
     Active Substance: TIPIRACIL HYDROCHLORIDE\TRIFLURIDINE
     Dosage: CYCLE UNKNOWN, 2 TABLETS IN THE MORNING AND 3 TABLETS IN THE EVENING.?DAILY DOSE: 100 MILLIGRAM(S)
     Route: 048
     Dates: start: 20220513

REACTIONS (3)
  - Disease progression [Fatal]
  - Nausea [Unknown]
  - Fatigue [Unknown]
